FAERS Safety Report 12237417 (Version 3)
Quarter: 2016Q2

REPORT INFORMATION
  Report Type: Spontaneous
  Country: PT (occurrence: PT)
  Receive Date: 20160405
  Receipt Date: 20160520
  Transmission Date: 20160815
  Serious: Yes (Hospitalization, Other)
  Sender: FDA-Public Use
  Company Number: PT-AUROBINDO-AUR-APL-2016-04290

PATIENT
  Sex: Male
  Weight: 3.59 kg

DRUGS (4)
  1. VENLAFAXINE 75MG [Suspect]
     Active Substance: VENLAFAXINE HYDROCHLORIDE
     Indication: DEPRESSION
     Dosage: 75 MG, UNK
     Route: 064
  2. VENLAFAXINE 75MG [Interacting]
     Active Substance: VENLAFAXINE HYDROCHLORIDE
     Dosage: 75 MG, UNK
     Route: 064
  3. ALPRAZOLAM 0.5MG [Interacting]
     Active Substance: ALPRAZOLAM
     Indication: DEPRESSION
     Dosage: 0.5 MG, UNK
     Route: 064
  4. ALPRAZOLAM 0.5MG [Interacting]
     Active Substance: ALPRAZOLAM
     Dosage: 75 MG, UNK
     Route: 064

REACTIONS (11)
  - Mitral valve incompetence [Recovered/Resolved]
  - Neonatal respiratory distress syndrome [Recovered/Resolved]
  - Feeding disorder [Recovered/Resolved]
  - Ventricular dysfunction [Recovered/Resolved]
  - Hepatomegaly [Recovered/Resolved]
  - Ejection fraction decreased [Recovered/Resolved]
  - Tachypnoea [Recovered/Resolved]
  - Tachycardia [Recovered/Resolved]
  - Foetal exposure during pregnancy [Recovered/Resolved]
  - Dilatation ventricular [Recovered/Resolved]
  - Drug interaction [Recovered/Resolved]
